FAERS Safety Report 8820832 (Version 1)
Quarter: 2012Q4

REPORT INFORMATION
  Report Type: 
  Country: CA (occurrence: GB)
  Receive Date: 20121002
  Receipt Date: 20121002
  Transmission Date: 20130627
  Serious: Yes (Other)
  Sender: FDA-Public Use
  Company Number: GB-ELI_LILLY_AND_COMPANY-GB201209007828

PATIENT
  Sex: Female

DRUGS (1)
  1. EFIENT [Suspect]
     Indication: ACUTE CORONARY SYNDROME

REACTIONS (1)
  - Thrombosis in device [Unknown]
